FAERS Safety Report 10265566 (Version 1)
Quarter: 2014Q2

REPORT INFORMATION
  Report Type: Report from Study
  Country: IN (occurrence: IN)
  Receive Date: 20140627
  Receipt Date: 20140627
  Transmission Date: 20141212
  Serious: Yes (Hospitalization)
  Sender: FDA-Public Use
  Company Number: IN-BAXTER-2014BAX034375

PATIENT
  Sex: Male

DRUGS (2)
  1. DIANEAL PD-2 PERITONEAL DIALISIS SOLUTION WITH 1.5% DEXTROSE [Suspect]
     Indication: PERITONEAL DIALYSIS
     Dosage: 3 BAGS OF 2 L
     Route: 033
     Dates: start: 20140129
  2. DIANEAL PD-2 PERITONEAL DIALISIS SOLUTION WITH 2.5% DEXTROSE [Suspect]
     Indication: PERITONEAL DIALYSIS
     Dosage: 1 BAG OF 2 L
     Route: 033
     Dates: start: 20140129

REACTIONS (1)
  - Infection [Unknown]
